FAERS Safety Report 14711850 (Version 1)
Quarter: 2018Q2

REPORT INFORMATION
  Report Type: Report from Study
  Country: US (occurrence: US)
  Receive Date: 20180403
  Receipt Date: 20180403
  Transmission Date: 20180711
  Serious: Yes (Other)
  Sender: FDA-Public Use
  Company Number: US-AMGEN-USASL2018043547

PATIENT
  Age: 24 Year
  Sex: Male

DRUGS (2)
  1. NEULASTA [Suspect]
     Active Substance: PEGFILGRASTIM
     Dosage: UNK, QWK AFTER CHEMO
     Route: 065
     Dates: end: 201603
  2. NEULASTA [Suspect]
     Active Substance: PEGFILGRASTIM
     Indication: RHABDOMYOSARCOMA
     Dosage: UNK, QWK AFTER CHEMO
     Route: 065
     Dates: start: 201508

REACTIONS (9)
  - Off label use [Unknown]
  - Aphonia [Unknown]
  - Sensory loss [Unknown]
  - Alopecia [Unknown]
  - Quality of life decreased [Unknown]
  - Photophobia [Unknown]
  - Unevaluable event [Unknown]
  - Gait disturbance [Unknown]
  - Ageusia [Unknown]

NARRATIVE: CASE EVENT DATE: 201508
